FAERS Safety Report 10779713 (Version 2)
Quarter: 2015Q1

REPORT INFORMATION
  Report Type: Spontaneous
  Country: US (occurrence: US)
  Receive Date: 20150210
  Receipt Date: 20150309
  Transmission Date: 20150721
  Serious: Yes (Death, Other)
  Sender: FDA-Public Use
  Company Number: US-ASTELLAS-2015US003746

PATIENT
  Age: 81 Year
  Sex: Male

DRUGS (1)
  1. XTANDI [Suspect]
     Active Substance: ENZALUTAMIDE
     Indication: PROSTATE CANCER
     Route: 048
     Dates: start: 20141230, end: 20150125

REACTIONS (4)
  - Pneumonia bacterial [Fatal]
  - Sepsis [Fatal]
  - Neoplasm malignant [Fatal]
  - Underdose [Unknown]

NARRATIVE: CASE EVENT DATE: 20150125
